FAERS Safety Report 24110346 (Version 2)
Quarter: 2024Q3

REPORT INFORMATION
  Report Type: Report from Study
  Country: CA (occurrence: CA)
  Receive Date: 20240718
  Receipt Date: 20240919
  Transmission Date: 20241017
  Serious: Yes (Hospitalization)
  Sender: ULTRAGENYX PHARMACEUTICAL
  Company Number: CA-ULTRAGENYX PHARMACEUTICAL INC.-CA-UGX-24-01355

PATIENT
  Sex: Female

DRUGS (16)
  1. DOJOLVI [Suspect]
     Active Substance: TRIHEPTANOIN
     Indication: Product used for unknown indication
     Dosage: UNK (VIA J-TUBE)
     Dates: start: 20240429
  2. DOJOLVI [Suspect]
     Active Substance: TRIHEPTANOIN
     Dosage: 4.5 MILLILITER, QID (VIA J-TUBE)
     Dates: end: 20240513
  3. DOJOLVI [Suspect]
     Active Substance: TRIHEPTANOIN
     Dosage: 1.5 MILLILITER, QID
     Route: 048
     Dates: start: 20240605
  4. DOJOLVI [Suspect]
     Active Substance: TRIHEPTANOIN
     Dosage: 2.5 MILLILITER, QID
     Route: 048
     Dates: start: 20240612
  5. DOJOLVI [Suspect]
     Active Substance: TRIHEPTANOIN
     Dosage: 3.5 MILLILITER, QID
     Route: 048
     Dates: start: 20240619
  6. DOJOLVI [Suspect]
     Active Substance: TRIHEPTANOIN
     Dosage: 4.5 MILLILITER, QID
     Route: 048
     Dates: start: 20240626, end: 20240626
  7. DOJOLVI [Suspect]
     Active Substance: TRIHEPTANOIN
     Dosage: 1.5 MILLILITER, QID
     Route: 048
     Dates: start: 20240628, end: 20240701
  8. THIAMINE [Concomitant]
     Active Substance: THIAMINE
     Indication: Product used for unknown indication
     Dosage: 100 MILLIGRAM
  9. PEG [PREGABALIN] [Concomitant]
     Indication: Product used for unknown indication
     Dosage: 17 GRAM
  10. DOMPERIDONE [Concomitant]
     Active Substance: DOMPERIDONE
     Indication: Product used for unknown indication
     Dosage: 6 MILLIGRAM
  11. VITAMIN B2 [Concomitant]
     Active Substance: RIBOFLAVIN
     Indication: Product used for unknown indication
     Dosage: 100 MILLIGRAM
  12. LEVOCARNITINE [Concomitant]
     Active Substance: LEVOCARNITINE
     Indication: Product used for unknown indication
     Dosage: 255 MILLIGRAM
  13. LANSOPRAZOLE [Concomitant]
     Active Substance: LANSOPRAZOLE
     Indication: Product used for unknown indication
     Dosage: 15 MILLIGRAM
  14. BIOTIN [Concomitant]
     Active Substance: BIOTIN
     Indication: Product used for unknown indication
     Dosage: 10000 MICROGRAM
  15. COENZYME Q10 [Concomitant]
     Active Substance: DIETARY SUPPLEMENT\UBIDECARENONE
     Indication: Product used for unknown indication
     Dosage: 60 MILLIGRAM
  16. VITAMIN C [Concomitant]
     Active Substance: ASCORBIC ACID
     Indication: Product used for unknown indication
     Dosage: 500 MILLIGRAM

REACTIONS (2)
  - Vomiting [Unknown]
  - Retching [Unknown]
